FAERS Safety Report 11725242 (Version 2)
Quarter: 2016Q1

REPORT INFORMATION
  Report Type: Spontaneous
  Country: US (occurrence: US)
  Receive Date: 20151111
  Receipt Date: 20160203
  Transmission Date: 20160525
  Serious: No
  Sender: FDA-Public Use
  Company Number: US-UCBSA-2015015382

PATIENT

DRUGS (5)
  1. KEPPRA [Suspect]
     Active Substance: LEVETIRACETAM
     Indication: SEIZURE
     Dosage: FOR 6 WEEKS, 2 PER DAY
  2. ESLICARBAZEPINE [Concomitant]
     Active Substance: ESLICARBAZEPINE
     Indication: EPILEPSY
     Dosage: UNK
  3. KEPPRA [Suspect]
     Active Substance: LEVETIRACETAM
     Dosage: 2000 MG/DAY
  4. LAMICTAL [Concomitant]
     Active Substance: LAMOTRIGINE
     Indication: EPILEPSY
     Dosage: UNK
  5. VIMPAT [Suspect]
     Active Substance: LACOSAMIDE
     Indication: EPILEPSY
     Dosage: UNK

REACTIONS (3)
  - Seizure [Unknown]
  - Depression [Unknown]
  - Anger [Unknown]
